FAERS Safety Report 24560247 (Version 1)
Quarter: 2024Q4

REPORT INFORMATION
  Report Type: Spontaneous
  Country: US (occurrence: None)
  Receive Date: 20241028
  Receipt Date: 20241028
  Transmission Date: 20250114
  Serious: No
  Sender: Public
  Company Number: None

PATIENT
  Age: 78 Year
  Sex: Male

DRUGS (2)
  1. TEMOZOLOMIDE [Suspect]
     Active Substance: TEMOZOLOMIDE
     Indication: Glioblastoma
     Dosage: FREQUENCY : DAILY;?
     Route: 048
  2. TEMOZOLOMIDE [Suspect]
     Active Substance: TEMOZOLOMIDE
     Indication: Glioblastoma
     Dosage: FREQUENCY : DAILY;?
     Route: 048

REACTIONS (2)
  - Nausea [None]
  - Confusional state [None]

NARRATIVE: CASE EVENT DATE: 20240925
